FAERS Safety Report 10495721 (Version 1)
Quarter: 2014Q4

REPORT INFORMATION
  Report Type: Other
  Country: GB (occurrence: GB)
  Receive Date: 20141003
  Receipt Date: 20141003
  Transmission Date: 20150528
  Serious: Yes (Other)
  Sender: FDA-Public Use
  Company Number: GB-MYLANLABS-2014M1005556

PATIENT

DRUGS (6)
  1. RISPERIDONE. [Suspect]
     Active Substance: RISPERIDONE
     Dosage: 2 MG, UNK (1MG WAS UPDATED TO 2MG)
     Route: 048
     Dates: start: 20140828, end: 20140910
  2. COCODAMOL [Concomitant]
     Active Substance: ACETAMINOPHEN\CODEINE PHOSPHATE
     Indication: ANALGESIC THERAPY
     Dosage: 2 DF, QID (500MG/8MG. ONGOING.)
     Route: 048
  3. PAROXETINE [Concomitant]
     Active Substance: PAROXETINE\PAROXETINE HYDROCHLORIDE
     Indication: ANXIETY
     Dosage: 10 ML, QD (IN THE MORNING. 20MG/10MLS. ONGOING)
     Route: 048
     Dates: start: 20140607
  4. DIAZEPAM. [Concomitant]
     Active Substance: DIAZEPAM
     Indication: ANXIETY
     Dosage: 5 ML, UNK (2MG/5MLS)
     Route: 048
     Dates: end: 20140607
  5. RISPERIDONE. [Suspect]
     Active Substance: RISPERIDONE
     Indication: ANXIETY
     Dosage: 1 MG, UNK
     Route: 048
     Dates: end: 20140827
  6. CITALOPRAM [Concomitant]
     Active Substance: CITALOPRAM HYDROBROMIDE
     Indication: ANXIETY
     Route: 048
     Dates: end: 20140607

REACTIONS (3)
  - Urinary incontinence [Recovering/Resolving]
  - Lethargy [Recovering/Resolving]
  - Flat affect [Recovering/Resolving]

NARRATIVE: CASE EVENT DATE: 20140901
